FAERS Safety Report 9726647 (Version 1)
Quarter: 2013Q4

REPORT INFORMATION
  Report Type: Report from Study
  Country: JP (occurrence: JP)
  Receive Date: 20131203
  Receipt Date: 20131203
  Transmission Date: 20140711
  Serious: Yes (Death)
  Sender: FDA-Public Use
  Company Number: JP-SA-2013SA122267

PATIENT
  Sex: 0

DRUGS (2)
  1. DOCETAXEL [Suspect]
     Indication: SQUAMOUS CELL CARCINOMA
     Dosage: 5 COURSES
     Route: 065
  2. THERAPEUTIC RADIOPHARMACEUTICALS [Concomitant]
     Indication: SQUAMOUS CELL CARCINOMA
     Dosage: 5 TIMES A WEEK

REACTIONS (1)
  - Pneumonia aspiration [Fatal]
